FAERS Safety Report 13701841 (Version 5)
Quarter: 2017Q3

REPORT INFORMATION
  Report Type: Report from Study
  Country: US (occurrence: US)
  Receive Date: 20170629
  Receipt Date: 20170823
  Transmission Date: 20171127
  Serious: Yes (Hospitalization, Other)
  Sender: FDA-Public Use
  Company Number: US-GILEAD-2017-0280807

PATIENT
  Age: 9 Year
  Sex: Male

DRUGS (4)
  1. REMODULIN [Concomitant]
     Active Substance: TREPROSTINIL
  2. ADCIRCA [Concomitant]
     Active Substance: TADALAFIL
  3. AMBRISENTAN [Suspect]
     Active Substance: AMBRISENTAN
     Indication: HEART DISEASE CONGENITAL
  4. AMBRISENTAN [Suspect]
     Active Substance: AMBRISENTAN
     Indication: PULMONARY HYPERTENSION
     Dosage: 5 MG, QD
     Route: 065
     Dates: start: 20120718

REACTIONS (7)
  - Heart rate increased [Recovered/Resolved]
  - Cardiac failure [Not Recovered/Not Resolved]
  - Vomiting [Not Recovered/Not Resolved]
  - Lung disorder [Not Recovered/Not Resolved]
  - Wrong technique in product usage process [Unknown]
  - Off label use [Not Recovered/Not Resolved]
  - Cyanosis [Recovered/Resolved]

NARRATIVE: CASE EVENT DATE: 20170618
